FAERS Safety Report 17917091 (Version 2)
Quarter: 2021Q2

REPORT INFORMATION
  Report Type: Report from Study
  Country: RU (occurrence: RU)
  Receive Date: 20200619
  Receipt Date: 20210629
  Transmission Date: 20210717
  Serious: Yes (Other)
  Sender: FDA-Public Use
  Company Number: RU-TEVA-2020-RU-1788038

PATIENT
  Age: 48 Year
  Sex: Female

DRUGS (15)
  1. HYDROXYZINE [Concomitant]
     Active Substance: HYDROXYZINE HYDROCHLORIDE
  2. RINGERS SOLUTION [Concomitant]
     Active Substance: CALCIUM CHLORIDE\POTASSIUM CHLORIDE\SODIUM CHLORIDE
  3. SALINE [Concomitant]
     Active Substance: SODIUM CHLORIDE
  4. KETOROLAC [Concomitant]
     Active Substance: KETOROLAC TROMETHAMINE
  5. CIPROFLOXACIN. [Concomitant]
     Active Substance: CIPROFLOXACIN
  6. PARACETAMOL [Concomitant]
     Active Substance: ACETAMINOPHEN
  7. CISPLATIN?TEVA [Suspect]
     Active Substance: CISPLATIN
     Indication: CERVIX CARCINOMA STAGE III
     Dosage: 3 CYCLES, AT A DOSE OF 66 MG 16?APR?2020, 23?APR?2020, 30?APR?2020
     Route: 065
  8. DEXAMETHASONE. [Concomitant]
     Active Substance: DEXAMETHASONE
  9. CHLOROPYRAMINE [Concomitant]
     Active Substance: CHLOROPYRAMINE
  10. OMEPRAZOLE. [Concomitant]
     Active Substance: OMEPRAZOLE
  11. PANCREATIN [Concomitant]
     Active Substance: PANCRELIPASE
  12. METOCLOPRAMIDE. [Concomitant]
     Active Substance: METOCLOPRAMIDE
  13. DROTAVERIN [Concomitant]
     Active Substance: DROTAVERINE
  14. LOPERAMIDE [Concomitant]
     Active Substance: LOPERAMIDE
  15. PLATIFILLIN HYDROTARTRATE [Concomitant]

REACTIONS (1)
  - Pancytopenia [Recovering/Resolving]
